FAERS Safety Report 15837598 (Version 4)
Quarter: 2019Q1

REPORT INFORMATION
  Report Type: Spontaneous
  Country: BR (occurrence: BR)
  Receive Date: 20190117
  Receipt Date: 20190318
  Transmission Date: 20190417
  Serious: Yes (Other)
  Sender: FDA-Public Use
  Company Number: BR-ABBVIE-19P-020-2629596-00

PATIENT
  Age: 24 Year
  Sex: Male
  Weight: 50 kg

DRUGS (3)
  1. DIVALCON ER [Suspect]
     Active Substance: DIVALPROEX SODIUM
     Indication: EPILEPSY
     Dosage: DAILY DOSE: 750MG; 1 TABLET OF 250MG IN THE MORNING WITH WATER AND 1 OF 500MG AT NIGHT
     Route: 048
  2. DIVALCON ER [Suspect]
     Active Substance: DIVALPROEX SODIUM
     Route: 048
  3. SERTRALINE HYDROCHLORIDE. [Suspect]
     Active Substance: SERTRALINE HYDROCHLORIDE
     Indication: DEPRESSION
     Route: 048

REACTIONS (4)
  - Product complaint [Unknown]
  - Malabsorption [Unknown]
  - Seizure [Unknown]
  - Product residue present [Not Recovered/Not Resolved]

NARRATIVE: CASE EVENT DATE: 201812
